FAERS Safety Report 23637085 (Version 1)
Quarter: 2024Q1

REPORT INFORMATION
  Report Type: Spontaneous
  Country: US (occurrence: US)
  Receive Date: 20240315
  Receipt Date: 20240315
  Transmission Date: 20240410
  Serious: No
  Sender: FDA-Public Use
  Company Number: US-TEVA-VS-3157351

PATIENT
  Age: 42 Year
  Sex: Female

DRUGS (3)
  1. UZEDY [Suspect]
     Active Substance: RISPERIDONE
     Indication: Schizoaffective disorder
     Route: 065
     Dates: start: 20230623
  2. RISPERDAL CONSTA [Concomitant]
     Active Substance: RISPERIDONE
  3. haldal [Concomitant]

REACTIONS (1)
  - Product use in unapproved indication [Unknown]
